FAERS Safety Report 8986513 (Version 4)
Quarter: 2013Q3

REPORT INFORMATION
  Report Type: Spontaneous
  Country: TW (occurrence: TW)
  Receive Date: 20121226
  Receipt Date: 20130723
  Transmission Date: 20140515
  Serious: Yes (Other)
  Sender: FDA-Public Use
  Company Number: TW-ROCHE-1167879

PATIENT
  Age: 18 Year
  Sex: Male

DRUGS (5)
  1. MIRCERA [Suspect]
     Indication: NEPHROGENIC ANAEMIA
     Route: 058
     Dates: start: 20100412, end: 20101117
  2. MIRCERA [Suspect]
     Route: 058
     Dates: start: 20111003, end: 20130207
  3. RECORMON [Suspect]
     Indication: NEPHROGENIC ANAEMIA
     Route: 058
     Dates: start: 19960524, end: 20100411
  4. RECORMON [Suspect]
     Route: 058
     Dates: start: 20101118, end: 20111002
  5. RECORMON [Suspect]
     Route: 058
     Dates: start: 20120109, end: 20121201

REACTIONS (1)
  - Aplasia pure red cell [Not Recovered/Not Resolved]
